FAERS Safety Report 16283975 (Version 1)
Quarter: 2019Q2

REPORT INFORMATION
  Report Type: Spontaneous
  Country: PT (occurrence: PT)
  Receive Date: 20190507
  Receipt Date: 20190507
  Transmission Date: 20190711
  Serious: Yes (Hospitalization, Other)
  Sender: FDA-Public Use
  Company Number: PT-ALLERGAN-1919091US

PATIENT
  Sex: Female

DRUGS (9)
  1. ACETYLSALICYLIC ACID [Concomitant]
     Active Substance: ASPIRIN
  2. ESCITALOPRAM OXALATE - BP [Suspect]
     Active Substance: ESCITALOPRAM OXALATE
     Indication: PRODUCT USED FOR UNKNOWN INDICATION
     Dosage: 14 CP DE 20 MG + 27 CP DE 10 MG
     Route: 048
     Dates: start: 20190423, end: 20190423
  3. LORAZEPAM. [Suspect]
     Active Substance: LORAZEPAM
     Indication: PRODUCT USED FOR UNKNOWN INDICATION
     Dosage: 72 CP DE 2.5 MG
     Route: 048
     Dates: start: 20190423, end: 20190423
  4. BUPROPION. [Concomitant]
     Active Substance: BUPROPION
  5. VENLAFAXINE [Concomitant]
     Active Substance: VENLAFAXINE HYDROCHLORIDE
  6. OLANZAPINE. [Concomitant]
     Active Substance: OLANZAPINE
  7. DIAZEPAM. [Concomitant]
     Active Substance: DIAZEPAM
  8. TOPIRAMATE. [Concomitant]
     Active Substance: TOPIRAMATE
  9. HYDROXYCARBAMIDE [Concomitant]
     Active Substance: HYDROXYUREA

REACTIONS (4)
  - Altered state of consciousness [Recovered/Resolved]
  - Intentional overdose [Recovered/Resolved]
  - Hypotension [Recovered/Resolved]
  - Somnolence [Recovered/Resolved]

NARRATIVE: CASE EVENT DATE: 20190423
